FAERS Safety Report 8588582 (Version 2)
Quarter: 2015Q2

REPORT INFORMATION
  Report Type: Spontaneous
  Country: US (occurrence: US)
  Receive Date: 20120531
  Receipt Date: 20150617
  Transmission Date: 20150821
  Serious: Yes (Congenital Anomaly, Other)
  Sender: FDA-Public Use
  Company Number: US-GLAXOSMITHKLINE-A0979520A

PATIENT
  Age: 0 Day
  Sex: Female

DRUGS (2)
  1. PAROXETINE HYDROCHLORIDE HYDRATE [Suspect]
     Active Substance: PAROXETINE HYDROCHLORIDE HEMIHYDRATE
     Indication: ANXIETY
     Dosage: 40 MG, UNK
     Route: 048
     Dates: start: 20090320, end: 200907
  2. PAXIL [Suspect]
     Active Substance: PAROXETINE HYDROCHLORIDE
     Indication: ANXIETY
     Dosage: 40 MG, U
     Route: 064
     Dates: start: 20020823, end: 2009

REACTIONS (10)
  - Viral upper respiratory tract infection [Unknown]
  - Adenoidal hypertrophy [Unknown]
  - Pharyngeal disorder [Unknown]
  - Foetal exposure during pregnancy [Unknown]
  - Otitis media [Unknown]
  - Foot deformity [Unknown]
  - Persistent foetal circulation [Unknown]
  - Astigmatism [Unknown]
  - Talipes [Unknown]
  - Pharyngitis streptococcal [Unknown]

NARRATIVE: CASE EVENT DATE: 20030601
